FAERS Safety Report 8366396-3 (Version None)
Quarter: 2012Q2

REPORT INFORMATION
  Report Type: 
  Country: None (occurrence: None)
  Receive Date: 20120517
  Receipt Date: 20120514
  Transmission Date: 20120825
  Serious: Yes (Other)
  Sender: FDA-Public Use
  Company Number: US-PFIZER INC-2012117093

PATIENT
  Sex: Female
  Weight: 47.619 kg

DRUGS (1)
  1. PREMARIN [Suspect]
     Indication: HYSTERECTOMY
     Dosage: 0.625 MG, DAILY
     Route: 048
     Dates: start: 19800101, end: 20120401

REACTIONS (1)
  - BIPOLAR DISORDER [None]
